FAERS Safety Report 5854571-9 (Version None)
Quarter: 2008Q3

REPORT INFORMATION
  Report Type: 
  Country: None (occurrence: None)
  Receive Date: 20080822
  Receipt Date: 20071011
  Transmission Date: 20090109
  Serious: No
  Sender: FDA-Public Use
  Company Number: US-ABBOTT-07P-163-0420918-00

PATIENT
  Sex: Female
  Weight: 58.566 kg

DRUGS (4)
  1. SYNTHROID [Suspect]
     Indication: HYPOTHYROIDISM
     Route: 048
     Dates: start: 20070801
  2. POTASSIUM CHLORIDE [Concomitant]
     Indication: SUPPLEMENTATION THERAPY
     Route: 048
     Dates: start: 20060201
  3. HYDROCHLOROTHIAZIDE (GENERIC) [Concomitant]
     Indication: BLOOD PRESSURE
     Route: 048
     Dates: start: 19800101
  4. PINDOLOL [Concomitant]
     Indication: BLOOD PRESSURE
     Route: 048

REACTIONS (5)
  - ALOPECIA [None]
  - ANOREXIA [None]
  - NAUSEA [None]
  - PULSE PRESSURE DECREASED [None]
  - TRICHORRHEXIS [None]
